FAERS Safety Report 14831944 (Version 1)
Quarter: 2018Q2

REPORT INFORMATION
  Report Type: Spontaneous
  Country: US (occurrence: US)
  Receive Date: 20180501
  Receipt Date: 20180501
  Transmission Date: 20180711
  Serious: Yes (Hospitalization, Other)
  Sender: FDA-Public Use
  Company Number: US-MALLINCKRODT-T201801745

PATIENT
  Sex: Female
  Weight: 10 kg

DRUGS (1)
  1. H.P. ACTHAR [Suspect]
     Active Substance: CORTICOTROPIN
     Indication: INFANTILE SPASMS
     Dosage: 80 UNITS DAILY
     Route: 058
     Dates: start: 20180411

REACTIONS (4)
  - Bradycardia [Unknown]
  - Hypothyroidism [Unknown]
  - Hypothermia [Unknown]
  - Seizure [Unknown]
